FAERS Safety Report 17376264 (Version 1)
Quarter: 2020Q1

REPORT INFORMATION
  Report Type: Spontaneous
  Country: HR (occurrence: HR)
  Receive Date: 20200206
  Receipt Date: 20200206
  Transmission Date: 20200409
  Serious: Yes (Other)
  Sender: FDA-Public Use
  Company Number: HR-BAYER-2020-019671

PATIENT
  Age: 61 Year
  Sex: Male
  Weight: 80 kg

DRUGS (1)
  1. INTERFERON BETA - 1B [Suspect]
     Active Substance: INTERFERON BETA-1B
     Indication: RELAPSING-REMITTING MULTIPLE SCLEROSIS
     Dosage: 300 UG, BID
     Route: 058
     Dates: start: 201904, end: 201910

REACTIONS (3)
  - Decreased appetite [Unknown]
  - Erectile dysfunction [Unknown]
  - Aphonia [Unknown]

NARRATIVE: CASE EVENT DATE: 201904
